FAERS Safety Report 4863532-8 (Version None)
Quarter: 2005Q4

REPORT INFORMATION
  Report Type: 
  Country: None (occurrence: None)
  Receive Date: 20051219
  Receipt Date: 20051219
  Transmission Date: 20060501
  Serious: Yes (Hospitalization)
  Sender: FDA-Public Use
  Company Number: None

PATIENT
  Age: 62 Year
  Sex: Male
  Weight: 79.8331 kg

DRUGS (1)
  1. AVASTIN [Suspect]
     Indication: COLORECTAL CANCER METASTATIC
     Dosage: 400 MG IV Q 2 WEEKS
     Route: 042

REACTIONS (4)
  - CATHETER SITE OEDEMA [None]
  - CATHETER SITE RELATED REACTION [None]
  - PYREXIA [None]
  - TENDERNESS [None]
